FAERS Safety Report 8986679 (Version 1)
Quarter: 2012Q4

REPORT INFORMATION
  Report Type: Spontaneous
  Country: US (occurrence: None)
  Receive Date: 20121219
  Receipt Date: 20121219
  Transmission Date: 20130627
  Serious: No
  Sender: FDA-Public Use
  Company Number: None

PATIENT
  Age: 65 Year
  Sex: Female
  Weight: 71.6 kg

DRUGS (2)
  1. HEPARIN SODIUM [Suspect]
     Indication: ANTICOAGULANT THERAPY
     Dosage: total 13,000 units, x1, IV
     Route: 042
     Dates: start: 20121218, end: 20121218
  2. HEPARIN SODIUM [Suspect]
     Indication: THERAPEUTIC PROCEDURE
     Dosage: total 13,000 units, x1, IV
     Route: 042
     Dates: start: 20121218, end: 20121218

REACTIONS (1)
  - Drug ineffective [None]
